FAERS Safety Report 19568728 (Version 5)
Quarter: 2022Q2

REPORT INFORMATION
  Report Type: Report from Study
  Country: FR (occurrence: FR)
  Receive Date: 20210714
  Receipt Date: 20220614
  Transmission Date: 20220720
  Serious: Yes (Death, Hospitalization, Other)
  Sender: FDA-Public Use
  Company Number: FR-GILEAD-2021-0539787

PATIENT
  Sex: Female

DRUGS (1)
  1. SACITUZUMAB GOVITECAN [Suspect]
     Active Substance: SACITUZUMAB GOVITECAN
     Indication: Metastatic neoplasm
     Dosage: UNK
     Route: 042

REACTIONS (12)
  - Drug ineffective [Not Recovered/Not Resolved]
  - Disease progression [Fatal]
  - Disease progression [Not Recovered/Not Resolved]
  - Pneumothorax [Not Recovered/Not Resolved]
  - Illness [Unknown]
  - Negative thoughts [Unknown]
  - Depressed mood [Unknown]
  - Pain [Not Recovered/Not Resolved]
  - Fatigue [Not Recovered/Not Resolved]
  - Vomiting [Unknown]
  - Nausea [Not Recovered/Not Resolved]
  - Insomnia [Unknown]

NARRATIVE: CASE EVENT DATE: 20211217
